FAERS Safety Report 8499188-5 (Version None)
Quarter: 2012Q3

REPORT INFORMATION
  Report Type: 
  Country: None (occurrence: None)
  Receive Date: 20120710
  Receipt Date: 20120702
  Transmission Date: 20120928
  Serious: Yes (Hospitalization)
  Sender: FDA-Public Use
  Company Number: GB-SP-2012-06500

PATIENT
  Age: 53 Year
  Sex: Male

DRUGS (1)
  1. IMMUCYST [Suspect]
     Indication: BLADDER CANCER
     Route: 065
     Dates: start: 20120530, end: 20120530

REACTIONS (2)
  - RESPIRATORY DISTRESS [None]
  - DISSEMINATED TUBERCULOSIS [None]
